FAERS Safety Report 5099297-7 (Version None)
Quarter: 2006Q3

REPORT INFORMATION
  Report Type: 
  Country: None (occurrence: None)
  Receive Date: 20060728
  Receipt Date: 20060509
  Transmission Date: 20061208
  Serious: No
  Sender: FDA-Public Use
  Company Number: COT_0521_2006

PATIENT
  Age: 13 Year
  Sex: Female
  Weight: 69.8539 kg

DRUGS (10)
  1. VENTAVIS [Suspect]
     Indication: PULMONARY HYPERTENSION
     Dosage: 5 MCG 6TO9X/DAY IH
     Dates: start: 20060313, end: 20060411
  2. TRACLEER [Concomitant]
  3. LORATADINE [Concomitant]
  4. DIGOXIN [Concomitant]
  5. WARFARIN SODIUM [Concomitant]
  6. FUROSEMIDE [Concomitant]
  7. SILDENAFIL [Concomitant]
  8. ACETAMINOPHEN [Concomitant]
  9. SINGULAIR [Concomitant]
  10. OXYGEN [Concomitant]

REACTIONS (3)
  - CHEST PAIN [None]
  - DYSPNOEA [None]
  - RESPIRATORY TRACT IRRITATION [None]
